FAERS Safety Report 24021101 (Version 1)
Quarter: 2024Q2

REPORT INFORMATION
  Report Type: Report from Study
  Country: US (occurrence: US)
  Receive Date: 20240627
  Receipt Date: 20240627
  Transmission Date: 20240716
  Serious: No
  Sender: FDA-Public Use
  Company Number: US-APELLIS-2024-APL-0000255

PATIENT

DRUGS (1)
  1. PEGCETACOPLAN [Suspect]
     Active Substance: PEGCETACOPLAN
     Indication: Paroxysmal nocturnal haemoglobinuria
     Dosage: 1080MG TWICE WEEKLY
     Route: 058
     Dates: start: 20230525

REACTIONS (2)
  - Fatigue [Unknown]
  - Hypersomnia [Unknown]
